FAERS Safety Report 7091617-7 (Version None)
Quarter: 2010Q4

REPORT INFORMATION
  Report Type: 
  Country: None (occurrence: None)
  Receive Date: 20101109
  Receipt Date: 20101027
  Transmission Date: 20110411
  Serious: Yes (Death, Life-Threatening, Hospitalization, Other)
  Sender: FDA-Public Use
  Company Number: US-GENZYME-CAMP-1001033

PATIENT
  Age: 32 Year
  Sex: Female
  Weight: 85.2 kg

DRUGS (21)
  1. CAMPATH [Suspect]
     Indication: ACUTE LYMPHOCYTIC LEUKAEMIA
     Dosage: 10 MG, UNK
     Route: 058
     Dates: start: 20100912, end: 20100912
  2. METHOTREXATE [Suspect]
     Indication: ACUTE LYMPHOCYTIC LEUKAEMIA
     Dosage: 300 MG, UNK
     Route: 042
     Dates: start: 20100912, end: 20100912
  3. VINCRISTINE [Suspect]
     Indication: ACUTE LYMPHOCYTIC LEUKAEMIA
     Dosage: 2 MG, UNK
     Dates: start: 20100913, end: 20100913
  4. ELSPAR [Suspect]
     Indication: ACUTE LYMPHOCYTIC LEUKAEMIA
     Dosage: 42600 MG, UNK
     Route: 030
     Dates: start: 20100913, end: 20100913
  5. DEXAMETHASONE [Suspect]
     Indication: ACUTE LYMPHOCYTIC LEUKAEMIA
     Dosage: 6 MG/M2, QD
     Route: 048
     Dates: start: 20100912, end: 20100921
  6. ANTINEOPLASTIC AGENTS [Concomitant]
     Dosage: UNK
     Dates: start: 20090101
  7. MEROPENEM [Concomitant]
     Indication: INFECTION PROPHYLAXIS
     Dosage: UNK
     Dates: start: 20100920
  8. CIPROFLOXACIN [Concomitant]
     Indication: INFECTION PROPHYLAXIS
     Dosage: 1000 MG, UNK
     Route: 065
     Dates: start: 20100920
  9. VORICONAZOLE [Concomitant]
     Indication: INFECTION PROPHYLAXIS
     Dosage: UNK
     Dates: start: 20100920
  10. CYCLOPHOSPHAMIDE [Concomitant]
     Dosage: UNK
     Route: 065
     Dates: end: 20090801
  11. VINCRISTINE [Concomitant]
     Dosage: UNK
     Route: 065
     Dates: end: 20090801
  12. DOXORUBICIN HCL [Concomitant]
     Dosage: UNK
     Route: 065
     Dates: end: 20090801
  13. DEXAMETHASONE [Concomitant]
     Dosage: UNK
     Route: 065
     Dates: end: 20090801
  14. IMMUNE GLOBULIN NOS [Concomitant]
     Dosage: UNK
     Route: 065
     Dates: start: 20090701, end: 20090701
  15. INSULIN [Concomitant]
     Dosage: UNK
     Route: 065
  16. MEGACE [Concomitant]
     Dosage: 40 MG, UNK
     Route: 065
  17. DEXAMETHASONE [Concomitant]
     Dosage: UNK
     Route: 065
  18. ONDANSETRON [Concomitant]
     Dosage: 8 MG, PRN
     Route: 065
  19. BACTRIM [Concomitant]
     Dosage: UNK
     Route: 065
  20. FAMCICLOVIR [Concomitant]
     Dosage: 500 MG, UNK
     Route: 065
  21. COMPAZINE [Concomitant]
     Dosage: 10 MG, PRN
     Route: 065

REACTIONS (7)
  - CEREBRAL HAEMORRHAGE [None]
  - MYOCARDIAL INFARCTION [None]
  - MYOSITIS [None]
  - PLATELET DISORDER [None]
  - PNEUMONIA [None]
  - SYSTEMIC MYCOSIS [None]
  - WHITE BLOOD CELL COUNT ABNORMAL [None]
